FAERS Safety Report 11898450 (Version 1)
Quarter: 2016Q1

REPORT INFORMATION
  Report Type: Spontaneous
  Country: FR (occurrence: FR)
  Receive Date: 20160108
  Receipt Date: 20160108
  Transmission Date: 20160526
  Serious: Yes (Other)
  Sender: FDA-Public Use
  Company Number: FR-TEVA-622436ISR

PATIENT
  Age: 60 Year
  Sex: Female

DRUGS (4)
  1. FLUDARABINE TEVA [Suspect]
     Active Substance: FLUDARABINE PHOSPHATE
     Route: 042
     Dates: start: 20151014, end: 20151017
  2. FLUDARABINE TEVA [Suspect]
     Active Substance: FLUDARABINE PHOSPHATE
     Indication: ACUTE MYELOID LEUKAEMIA
     Dosage: 50 MILLIGRAM DAILY; DAILY DOSE 50 MG. FIRST CONSOLIDATION COURSE OF FLAG PROTOCOL
     Route: 042
     Dates: start: 20150904, end: 20150908
  3. CYTARABINE KABI [Suspect]
     Active Substance: CYTARABINE
     Dosage: 4 GRAM DAILY; DAILY DOSE 4 GRAM. FIRST CONSOLIDATION COURSE OF FLAG PROTOCOL. 4 G BY INTRAVENOUS
     Route: 042
     Dates: start: 20150904, end: 20150908
  4. CYTARABINE KABI [Suspect]
     Active Substance: CYTARABINE
     Route: 042
     Dates: start: 20151014, end: 20151017

REACTIONS (2)
  - Pyrexia [Recovered/Resolved]
  - Hypotension [Recovered/Resolved]

NARRATIVE: CASE EVENT DATE: 20150905
